FAERS Safety Report 6943449-5 (Version None)
Quarter: 2010Q3

REPORT INFORMATION
  Report Type: 
  Country: None (occurrence: None)
  Receive Date: 20100823
  Receipt Date: 20100803
  Transmission Date: 20110219
  Serious: Yes (Life-Threatening)
  Sender: FDA-Public Use
  Company Number: 2010P1000229

PATIENT
  Age: 59 Year
  Sex: Male

DRUGS (5)
  1. ULTIVA [Suspect]
     Indication: SURGERY
     Dosage: 0.1 MCG/KG
  2. MIDAZOLAM (NO PREF. NAME) [Suspect]
     Indication: SURGERY
     Dosage: 1.5 MG;X1
  3. PROPOFOL [Suspect]
     Indication: SURGERY
     Dosage: 1 MG/KG.HR ; 50 MG;X1
  4. CON MEDS [Concomitant]
  5. PREV MEDS [Concomitant]

REACTIONS (17)
  - DECEREBRATION [None]
  - DISCOMFORT [None]
  - DRUG INEFFECTIVE [None]
  - ELECTROCARDIOGRAM QRS COMPLEX SHORTENED [None]
  - GAZE PALSY [None]
  - HEART RATE DECREASED [None]
  - HYPERTENSION [None]
  - HYPOXIA [None]
  - MUCOSAL DISCOLOURATION [None]
  - MUSCLE RIGIDITY [None]
  - MYDRIASIS [None]
  - PSYCHOMOTOR HYPERACTIVITY [None]
  - RESPIRATORY ARREST [None]
  - SOMNOLENCE [None]
  - TACHYCARDIA [None]
  - UNRESPONSIVE TO STIMULI [None]
  - URINARY INCONTINENCE [None]
